FAERS Safety Report 24365981 (Version 1)
Quarter: 2024Q3

REPORT INFORMATION
  Report Type: Spontaneous
  Country: US (occurrence: US)
  Receive Date: 20240926
  Receipt Date: 20240926
  Transmission Date: 20241017
  Serious: Yes (Hospitalization, Other)
  Sender: Steriscience PTE
  Company Number: US-STERISCIENCE B.V.-2024-ST-001474

PATIENT
  Age: 44 Year
  Sex: Male

DRUGS (25)
  1. MEROPENEM [Suspect]
     Active Substance: MEROPENEM
     Indication: Antibiotic therapy
     Dosage: EXTENDED INFUSION OVER 3 HOURS EVERY 12 HOURS
     Route: 042
  2. MEROPENEM [Suspect]
     Active Substance: MEROPENEM
     Indication: Acinetobacter infection
     Dosage: UNK
     Route: 065
  3. MEROPENEM [Suspect]
     Active Substance: MEROPENEM
     Indication: Pathogen resistance
  4. AZTREONAM [Suspect]
     Active Substance: AZTREONAM
     Indication: Acinetobacter bacteraemia
     Dosage: 2 GRAM, BID
     Route: 042
  5. AZTREONAM [Suspect]
     Active Substance: AZTREONAM
     Indication: Pathogen resistance
  6. CEFIDEROCOL [Suspect]
     Active Substance: CEFIDEROCOL
     Indication: Pathogen resistance
     Dosage: 2 GRAM, Q8H
     Route: 042
  7. CEFIDEROCOL [Suspect]
     Active Substance: CEFIDEROCOL
     Indication: Acinetobacter infection
     Dosage: UNK
     Route: 065
  8. AVIBACTAM SODIUM\CEFTAZIDIME [Suspect]
     Active Substance: AVIBACTAM SODIUM\CEFTAZIDIME
     Indication: Pathogen resistance
     Dosage: 1.25 GRAM, Q8H
     Route: 042
  9. AVIBACTAM SODIUM\CEFTAZIDIME [Suspect]
     Active Substance: AVIBACTAM SODIUM\CEFTAZIDIME
     Indication: Acinetobacter infection
  10. DURLOBACTAM\SULBACTAM [Suspect]
     Active Substance: DURLOBACTAM\SULBACTAM
     Indication: Pathogen resistance
     Dosage: 1.5 GRAM, Q6H
     Route: 065
  11. DURLOBACTAM\SULBACTAM [Suspect]
     Active Substance: DURLOBACTAM\SULBACTAM
     Indication: Acinetobacter infection
     Dosage: UNK, REDUCED
     Route: 065
  12. TIGECYCLINE [Suspect]
     Active Substance: TIGECYCLINE
     Indication: Pathogen resistance
     Dosage: UNK
     Route: 065
  13. TIGECYCLINE [Suspect]
     Active Substance: TIGECYCLINE
     Indication: Acinetobacter infection
     Dosage: UNK, DOSE WAS REDUCED
     Route: 065
  14. TIGECYCLINE [Suspect]
     Active Substance: TIGECYCLINE
     Dosage: UNK, INCREASED DOSE
     Route: 065
  15. POLYMYXIN B [Suspect]
     Active Substance: POLYMYXIN B
     Indication: Pathogen resistance
     Dosage: 15000 INTERNATIONAL UNIT/KILOGRAM, BID
     Route: 065
  16. POLYMYXIN B [Suspect]
     Active Substance: POLYMYXIN B
     Indication: Acinetobacter infection
     Dosage: UNK
     Route: 065
  17. POLYMYXIN B [Suspect]
     Active Substance: POLYMYXIN B
     Dosage: UNK
     Route: 065
  18. MINOCYCLINE [Suspect]
     Active Substance: MINOCYCLINE HYDROCHLORIDE
     Indication: Antibiotic therapy
     Dosage: UNK
     Route: 065
  19. MINOCYCLINE [Suspect]
     Active Substance: MINOCYCLINE HYDROCHLORIDE
     Indication: Acinetobacter infection
     Dosage: UNK
     Route: 065
  20. MINOCYCLINE [Suspect]
     Active Substance: MINOCYCLINE HYDROCHLORIDE
     Indication: Pathogen resistance
  21. ERAVACYCLINE [Suspect]
     Active Substance: ERAVACYCLINE
     Indication: Acinetobacter infection
     Dosage: 1 MILLIGRAM/KILOGRAM, BID
     Route: 042
  22. ERAVACYCLINE [Suspect]
     Active Substance: ERAVACYCLINE
     Indication: Pathogen resistance
  23. CEFTOLOZANE SULFATE\TAZOBACTAM SODIUM [Concomitant]
     Active Substance: CEFTOLOZANE SULFATE\TAZOBACTAM SODIUM
     Indication: Evidence based treatment
     Dosage: UNK
     Route: 065
  24. VANCOMYCIN [Concomitant]
     Active Substance: VANCOMYCIN
     Indication: Evidence based treatment
     Dosage: UNK
     Route: 065
  25. COTRIMOXAZOLE [Concomitant]
     Active Substance: SULFAMETHOXAZOLE\TRIMETHOPRIM
     Indication: Evidence based treatment
     Dosage: UNK
     Route: 065

REACTIONS (5)
  - Condition aggravated [Unknown]
  - Gene mutation [Unknown]
  - Hepatic enzyme increased [Unknown]
  - Drug ineffective for unapproved indication [Unknown]
  - Multiple-drug resistance [Unknown]
